FAERS Safety Report 6391580-8 (Version None)
Quarter: 2009Q4

REPORT INFORMATION
  Report Type: 
  Country: None (occurrence: None)
  Receive Date: 20091007
  Receipt Date: 20090930
  Transmission Date: 20100525
  Serious: Yes (Death, Life-Threatening, Hospitalization)
  Sender: FDA-Public Use
  Company Number: US-AVENTIS-200920357GDDC

PATIENT
  Age: 74 Year
  Sex: Male
  Weight: 84.1 kg

DRUGS (9)
  1. AFLIBERCEPT [Suspect]
     Indication: NON-SMALL CELL LUNG CANCER
     Route: 042
     Dates: start: 20090903, end: 20090903
  2. DOCETAXEL [Suspect]
     Indication: NON-SMALL CELL LUNG CANCER
     Route: 042
     Dates: start: 20090903, end: 20090903
  3. ACCUPRIL [Concomitant]
     Dates: start: 20040101
  4. NORVASC [Concomitant]
     Dates: start: 20040101
  5. ATENOLOL [Concomitant]
     Dates: start: 20040101
  6. LIPITOR [Concomitant]
     Dates: start: 20040101
  7. PRILOSEC [Concomitant]
     Dates: start: 20030101
  8. ASPIRIN [Concomitant]
     Dates: start: 20040101
  9. CENTRUM SILVER                     /01292501/ [Concomitant]
     Dates: start: 19960101

REACTIONS (1)
  - PNEUMONIA ASPIRATION [None]
